FAERS Safety Report 21148989 (Version 1)
Quarter: 2022Q3

REPORT INFORMATION
  Report Type: Spontaneous
  Country: FR (occurrence: FR)
  Receive Date: 20220729
  Receipt Date: 20220729
  Transmission Date: 20221026
  Serious: Yes (Disabling)
  Sender: FDA-Public Use
  Company Number: None

PATIENT
  Age: 38 Year
  Sex: Male
  Weight: 69.8 kg

DRUGS (10)
  1. DOXYCYCLINE [Suspect]
     Active Substance: DOXYCYCLINE
     Indication: Whipple^s disease
     Dosage: 3 DOSAGE FORM, QD (1 - 0 - 1)
     Route: 048
     Dates: start: 20211008, end: 20220208
  2. DOXYCYCLINE [Suspect]
     Active Substance: DOXYCYCLINE
     Dosage: 3 DOSAGE FORM, QD
     Route: 048
     Dates: start: 20220208
  3. PLAQUENIL [Suspect]
     Active Substance: HYDROXYCHLOROQUINE SULFATE
     Indication: Whipple^s disease
     Dosage: 3 DOSAGE FORM, QD (1-1-1)
     Route: 048
     Dates: start: 20211008
  4. PAROXETINE [Concomitant]
     Active Substance: PAROXETINE
     Indication: Panic attack
     Dosage: 40 MG, QD (1 - 0 - 1)
     Route: 048
  5. TRANSIPEG [Concomitant]
     Indication: Constipation
     Dosage: 2 MAX PAR JOUR, SI BESOIN
     Route: 048
     Dates: start: 2021
  6. CALCIUM PHOSPHATE, DIBASIC, ANHYDROUS\MAGNESIUM GLYCEROPHOSPHATE\PHOSP [Concomitant]
     Active Substance: CALCIUM PHOSPHATE, DIBASIC, ANHYDROUS\MAGNESIUM GLYCEROPHOSPHATE\PHOSPHORIC ACID\SODIUM PHOSPHATE, D
     Indication: Mineral supplementation
     Dosage: 75 DRP, QD (25 GOUTTES MATIN, MIDI, SOIR)
     Route: 048
     Dates: start: 20211008, end: 20211018
  7. POTASSIUM CHLORIDE [Concomitant]
     Active Substance: POTASSIUM CHLORIDE
     Indication: Mineral supplementation
     Dosage: 3 DOSAGE FORM, QD (1 - 1 - 1)
     Route: 048
     Dates: start: 2021
  8. LOVENOX [Concomitant]
     Active Substance: ENOXAPARIN SODIUM
     Indication: Thrombosis prophylaxis
     Dosage: 4000 IU, QD (0 0 1, 4 000 UI ANTI-XA/0,4 ML)
     Route: 048
     Dates: start: 2021
  9. DOLIPRANE [Concomitant]
     Active Substance: ACETAMINOPHEN
     Indication: Pain
     Dosage: 2 DOSAGE FORM (2 - 2 - 2 - 2, SI BESOIN)
     Route: 048
  10. MAGNESIUM [Concomitant]
     Active Substance: MAGNESIUM
     Indication: Mineral supplementation
     Dosage: 3 DOSAGE FORM, QD (1-1-1)
     Route: 048
     Dates: start: 20211008, end: 20211018

REACTIONS (1)
  - Deafness neurosensory [Not Recovered/Not Resolved]

NARRATIVE: CASE EVENT DATE: 20211008
